FAERS Safety Report 7665545-X (Version None)
Quarter: 2011Q3

REPORT INFORMATION
  Report Type: 
  Country: None (occurrence: None)
  Receive Date: 20110806
  Receipt Date: 20110502
  Transmission Date: 20111222
  Serious: No
  Sender: FDA-Public Use
  Company Number: US-ABBOTT-11P-163-0723296-00

PATIENT
  Sex: Male
  Weight: 83.082 kg

DRUGS (7)
  1. ASPIRIN [Suspect]
  2. NIASPAN [Suspect]
     Indication: BLOOD CHOLESTEROL INCREASED
     Dates: start: 20110201
  3. ASPIRIN [Suspect]
     Indication: PROPHYLAXIS
  4. LOVAZA [Concomitant]
     Indication: BLOOD CHOLESTEROL INCREASED
  5. PRILOSEC [Concomitant]
     Indication: GASTROOESOPHAGEAL REFLUX DISEASE
  6. ATENOLOL [Concomitant]
     Indication: HYPERTENSION
  7. VYTORIN [Concomitant]
     Indication: BLOOD CHOLESTEROL INCREASED

REACTIONS (3)
  - FLUSHING [None]
  - EPISTAXIS [None]
  - ABDOMINAL DISCOMFORT [None]
